FAERS Safety Report 6123358-4 (Version None)
Quarter: 2009Q1

REPORT INFORMATION
  Report Type: 
  Country: None (occurrence: None)
  Receive Date: 20090318
  Receipt Date: 20090311
  Transmission Date: 20090719
  Serious: Yes (Hospitalization)
  Sender: FDA-Public Use
  Company Number: US-ASTRAZENECA-2009UW06452

PATIENT
  Age: 77 Year
  Sex: Female
  Weight: 68 kg

DRUGS (8)
  1. CRESTOR [Suspect]
     Indication: BLOOD CHOLESTEROL INCREASED
     Route: 048
  2. CRESTOR [Suspect]
     Route: 048
  3. PROTONIX [Concomitant]
  4. BENTYL [Concomitant]
  5. NITROGLYCERIN [Concomitant]
  6. INSULIN [Concomitant]
  7. COREG [Concomitant]
  8. ASPIRIN [Concomitant]

REACTIONS (3)
  - CARDIAC FAILURE CONGESTIVE [None]
  - MUSCULAR WEAKNESS [None]
  - MYALGIA [None]
